FAERS Safety Report 19608719 (Version 1)
Quarter: 2021Q3

REPORT INFORMATION
  Report Type: Spontaneous
  Country: US (occurrence: US)
  Receive Date: 20210721
  Receipt Date: 20210721
  Transmission Date: 20211014
  Serious: No
  Sender: FDA-Public Use
  Company Number: None

PATIENT

DRUGS (2)
  1. MAGNESIUM SULFATE INJECTION [Suspect]
     Active Substance: MAGNESIUM SULFATE
     Dosage: ?          OTHER STRENGTH:4/100 G/ML;?
  2. MAGNESIUM SULFATE INJECTION [Suspect]
     Active Substance: MAGNESIUM SULFATE
     Dosage: ?          OTHER STRENGTH:1/100 G/ML;?

REACTIONS (2)
  - Product packaging confusion [None]
  - Compression garment application [None]
